FAERS Safety Report 12709899 (Version 2)
Quarter: 2019Q1

REPORT INFORMATION
  Report Type: Report from Study
  Country: JP (occurrence: JP)
  Receive Date: 20160902
  Receipt Date: 20190311
  Transmission Date: 20190417
  Serious: Yes (Hospitalization, Other)
  Sender: FDA-Public Use
  Company Number: JP-GLAXOSMITHKLINE-JP2015JPN103946

PATIENT
  Age: 42 Year
  Sex: Male
  Weight: 72 kg

DRUGS (19)
  1. LAMOTRIGINE. [Suspect]
     Active Substance: LAMOTRIGINE
     Dosage: 150 MG, QD
     Route: 048
  2. LAMICTAL [Suspect]
     Active Substance: LAMOTRIGINE
     Dosage: 100 MG, 1D
     Route: 048
     Dates: start: 201405, end: 201405
  3. SUMATRIPTAN. [Concomitant]
     Active Substance: SUMATRIPTAN
     Indication: SUNCT SYNDROME
     Dosage: 3 MG, 1D
     Dates: start: 201405
  4. LIDOCAINE. [Concomitant]
     Active Substance: LIDOCAINE
     Dosage: UNK
     Dates: start: 201412, end: 201412
  5. CARBAMAZEPINE. [Concomitant]
     Active Substance: CARBAMAZEPINE
     Indication: SUNCT SYNDROME
     Dosage: 400 MG, 1D
  6. LAMOTRIGINE. [Suspect]
     Active Substance: LAMOTRIGINE
     Indication: HEADACHE
     Dosage: 50 MG, QD
     Route: 048
  7. TOPIRAMATE. [Concomitant]
     Active Substance: TOPIRAMATE
     Indication: SUNCT SYNDROME
     Dosage: 50 MG, 1D
     Route: 048
     Dates: start: 201406, end: 201406
  8. GABAPENTIN. [Concomitant]
     Active Substance: GABAPENTIN
     Dosage: 1800 MG, 1D
     Dates: end: 201412
  9. LAMOTRIGINE. [Suspect]
     Active Substance: LAMOTRIGINE
     Dosage: 200 MG, QD
     Route: 048
  10. INDOMETACIN [Concomitant]
     Active Substance: INDOMETHACIN
     Indication: SUNCT SYNDROME
     Dosage: 75 MG, 1D
  11. LAMOTRIGINE. [Suspect]
     Active Substance: LAMOTRIGINE
     Dosage: 100 MG, QD
     Route: 048
  12. LAMICTAL [Suspect]
     Active Substance: LAMOTRIGINE
     Indication: SUNCT SYNDROME
     Dosage: 50 MG, 1D
     Route: 048
     Dates: start: 201405, end: 201405
  13. LAMICTAL [Suspect]
     Active Substance: LAMOTRIGINE
     Dosage: 150 MG, 1D
     Route: 048
     Dates: start: 201405, end: 201406
  14. LAMICTAL [Suspect]
     Active Substance: LAMOTRIGINE
     Dosage: 200 MG, 1D
     Route: 048
     Dates: start: 201406, end: 201406
  15. LIDOCAINE. [Concomitant]
     Active Substance: LIDOCAINE
     Dosage: 1.58 MG/KG, UNK, PER HOUR
     Route: 042
  16. TOPIRAMATE. [Concomitant]
     Active Substance: TOPIRAMATE
     Dosage: 100 MG, 1D
     Route: 048
     Dates: start: 201406, end: 201406
  17. LIDOCAINE. [Concomitant]
     Active Substance: LIDOCAINE
     Indication: SUNCT SYNDROME
     Dosage: UNK
     Dates: start: 201405, end: 201405
  18. TOPIRAMATE. [Concomitant]
     Active Substance: TOPIRAMATE
     Dosage: 50 MG, 1D
     Route: 048
     Dates: start: 201406, end: 201412
  19. GABAPENTIN. [Concomitant]
     Active Substance: GABAPENTIN
     Indication: SUNCT SYNDROME
     Dosage: 1200 MG, 1D

REACTIONS (8)
  - Dermatitis bullous [Recovered/Resolved]
  - Hepatic function abnormal [Recovering/Resolving]
  - Stevens-Johnson syndrome [Recovering/Resolving]
  - Pyrexia [Recovering/Resolving]
  - Toxic skin eruption [Unknown]
  - SUNCT syndrome [Recovered/Resolved]
  - Drug eruption [Recovered/Resolved]
  - Rash pruritic [Recovering/Resolving]

NARRATIVE: CASE EVENT DATE: 201406
